FAERS Safety Report 7540164-4 (Version None)
Quarter: 2011Q2

REPORT INFORMATION
  Report Type: 
  Country: None (occurrence: None)
  Receive Date: 20110610
  Receipt Date: 20110531
  Transmission Date: 20111010
  Serious: Yes (Hospitalization)
  Sender: FDA-Public Use
  Company Number: CA-JNJFOC-20110601031

PATIENT
  Sex: Female

DRUGS (3)
  1. DETROL [Concomitant]
     Route: 048
  2. SIMPONI [Suspect]
     Indication: PSORIATIC ARTHROPATHY
     Route: 058
     Dates: start: 20100817
  3. SEPTRA [Concomitant]
     Dates: end: 20110528

REACTIONS (3)
  - DYSPNOEA [None]
  - STAPHYLOCOCCAL INFECTION [None]
  - SEPSIS [None]
